FAERS Safety Report 7587713-8 (Version None)
Quarter: 2011Q3

REPORT INFORMATION
  Report Type: 
  Country: None (occurrence: None)
  Receive Date: 20110704
  Receipt Date: 20110627
  Transmission Date: 20111222
  Serious: Yes (Other)
  Sender: FDA-Public Use
  Company Number: PHHY2011RU47155

PATIENT
  Age: 61 Year
  Sex: Female

DRUGS (3)
  1. ARIMIDEX [Concomitant]
     Dosage: ONE TABLET DAILY
  2. ZOMETA [Suspect]
     Indication: BREAST CANCER
     Dosage: 4.0 (5.0 ML) EVERY MONTH
  3. ZOMETA [Suspect]
     Dosage: UNK
     Dates: start: 20110215

REACTIONS (8)
  - TOOTH EROSION [None]
  - BONE PAIN [None]
  - OSTEONECROSIS OF JAW [None]
  - GENERAL PHYSICAL HEALTH DETERIORATION [None]
  - GINGIVAL BLEEDING [None]
  - MUCOSAL EROSION [None]
  - PURULENCE [None]
  - ORAL DISORDER [None]
